FAERS Safety Report 5964437-1 (Version None)
Quarter: 2008Q4

REPORT INFORMATION
  Report Type: 
  Country: None (occurrence: None)
  Receive Date: 20081124
  Receipt Date: 20081124
  Transmission Date: 20090506
  Serious: Yes (Life-Threatening, Other)
  Sender: FDA-Public Use
  Company Number: None

PATIENT
  Age: 7 Day
  Sex: Male
  Weight: 3.1752 kg

DRUGS (1)
  1. ZANTAC [Suspect]
     Indication: GASTROOESOPHAGEAL REFLUX DISEASE
     Dosage: 1 ML 3X A DAY 3X DAY PO
     Route: 048
     Dates: start: 20071007, end: 20080102

REACTIONS (6)
  - HYPERSOMNIA [None]
  - LETHARGY [None]
  - MEDICATION ERROR [None]
  - RESPIRATORY ARREST [None]
  - SKIN DISCOLOURATION [None]
  - TREMOR [None]
